FAERS Safety Report 9322017 (Version 2)
Quarter: 2013Q2

REPORT INFORMATION
  Report Type: Spontaneous
  Country: US (occurrence: US)
  Receive Date: 20130531
  Receipt Date: 20130603
  Transmission Date: 20140414
  Serious: Yes (Other)
  Sender: FDA-Public Use
  Company Number: US-PFIZER INC-2013162189

PATIENT
  Age: 82 Year
  Sex: Female
  Weight: 58.96 kg

DRUGS (3)
  1. ROBITUSSIN PEAK COLD MAXIMUM STRENGTH COUGH PLUS CHEST CONGESTION DM [Suspect]
     Indication: NASOPHARYNGITIS
     Dosage: 2 TEASPOON, ONCE
     Dates: start: 20130526, end: 20130526
  2. ROBITUSSIN PEAK COLD MAXIMUM STRENGTH COUGH PLUS CHEST CONGESTION DM [Suspect]
     Indication: COUGH
  3. AVELOX [Concomitant]
     Indication: BRONCHITIS
     Dosage: 400 MG, 1X/DAY
     Route: 048
     Dates: start: 20130526

REACTIONS (2)
  - Aphonia [Not Recovered/Not Resolved]
  - Insomnia [Unknown]
